FAERS Safety Report 12683223 (Version 1)
Quarter: 2016Q3

REPORT INFORMATION
  Report Type: Spontaneous
  Country: US (occurrence: None)
  Receive Date: 20160824
  Receipt Date: 20160824
  Transmission Date: 20161109
  Serious: No
  Sender: FDA-Public Use
  Company Number: None

PATIENT
  Age: 48 Year
  Sex: Female

DRUGS (1)
  1. BOTOX [Suspect]
     Active Substance: ONABOTULINUMTOXINA
     Indication: MIGRAINE

REACTIONS (5)
  - Headache [None]
  - Hallucination [None]
  - Urticaria [None]
  - Amnesia [None]
  - Dyspnoea [None]

NARRATIVE: CASE EVENT DATE: 20160823
